FAERS Safety Report 9417042 (Version 1)
Quarter: 2013Q3

REPORT INFORMATION
  Report Type: Spontaneous
  Country: US (occurrence: None)
  Receive Date: 20130722
  Receipt Date: 20130722
  Transmission Date: 20140515
  Serious: Yes (Death, Other)
  Sender: FDA-Public Use
  Company Number: IPC201307-000283

PATIENT
  Age: 55 Year
  Sex: Female

DRUGS (1)
  1. HYDROXYCHLOROQUINE SULFATE [Suspect]
     Dosage: 400MG/D

REACTIONS (11)
  - Cardiomyopathy [None]
  - Hepatic failure [None]
  - Autoimmune hepatitis [None]
  - Renal failure [None]
  - Enterococcal infection [None]
  - Varices oesophageal [None]
  - Hepatic neoplasm [None]
  - Post procedural complication [None]
  - Atelectasis [None]
  - Coronary artery disease [None]
  - Endocarditis [None]
